FAERS Safety Report 13085472 (Version 1)
Quarter: 2017Q1

REPORT INFORMATION
  Report Type: Spontaneous
  Country: US (occurrence: US)
  Receive Date: 20170104
  Receipt Date: 20170104
  Transmission Date: 20170428
  Serious: No
  Sender: FDA-Public Use
  Company Number: US-PFIZER INC-2016602471

PATIENT
  Age: 55 Year
  Sex: Female
  Weight: 59 kg

DRUGS (1)
  1. FLAGYL [Suspect]
     Active Substance: METRONIDAZOLE\METRONIDAZOLE HYDROCHLORIDE
     Dosage: UNK

REACTIONS (4)
  - Drug hypersensitivity [Unknown]
  - Throat tightness [Unknown]
  - Rash generalised [Unknown]
  - Rash papular [Unknown]
